FAERS Safety Report 9859503 (Version 8)
Quarter: 2014Q2

REPORT INFORMATION
  Report Type: Spontaneous
  Country: JP (occurrence: JP)
  Receive Date: 20140131
  Receipt Date: 20140612
  Transmission Date: 20141212
  Serious: Yes (Life-Threatening, Hospitalization, Other)
  Sender: FDA-Public Use
  Company Number: JP-PFIZER INC-2014028551

PATIENT
  Age: 77 Year
  Sex: Male
  Weight: 61.4 kg

DRUGS (6)
  1. RHEUMATREX [Suspect]
     Indication: RHEUMATOID ARTHRITIS
     Dosage: 8 MG, WEEKLY
     Route: 048
     Dates: start: 2011, end: 20140112
  2. CELECOX [Suspect]
     Dosage: 200 MG, 2X/DAY
     Route: 048
     Dates: end: 20140112
  3. BUCILLATE [Concomitant]
     Dosage: 100 MG, 2X/DAY
     Route: 048
  4. RABEPRAZOLE SODIUM [Concomitant]
     Dosage: 10 MG, 1X/DAY
     Route: 048
  5. FOLIAMIN [Concomitant]
     Dosage: 5 MG, 1X/DAY
     Route: 048
     Dates: end: 20140120
  6. SHAKUYAKU-KANZO-TO [Concomitant]
     Dosage: 2.5 G, 1X/DAY
     Route: 048

REACTIONS (4)
  - Pharyngeal haemorrhage [Recovering/Resolving]
  - Pharyngeal ulceration [Recovering/Resolving]
  - Urinary retention [Recovering/Resolving]
  - Abdominal distension [Recovering/Resolving]
